FAERS Safety Report 18981273 (Version 1)
Quarter: 2021Q1

REPORT INFORMATION
  Report Type: Spontaneous
  Country: US (occurrence: US)
  Receive Date: 20210308
  Receipt Date: 20210308
  Transmission Date: 20210420
  Serious: No
  Sender: FDA-Public Use
  Company Number: US-GW PHARMA-202103USGW00977

PATIENT

DRUGS (1)
  1. EPIDIOLEX [Suspect]
     Active Substance: CANNABIDIOL
     Indication: LAFORA^S MYOCLONIC EPILEPSY
     Dosage: UNK
     Route: 048
     Dates: start: 202012

REACTIONS (2)
  - Product use in unapproved indication [Unknown]
  - Seizure [Unknown]
